FAERS Safety Report 6647516-5 (Version None)
Quarter: 2010Q1

REPORT INFORMATION
  Report Type: 
  Country: None (occurrence: None)
  Receive Date: 20100323
  Receipt Date: 20100319
  Transmission Date: 20100710
  Serious: Yes (Other)
  Sender: FDA-Public Use
  Company Number: IT-MERCK-1003ITA00036

PATIENT
  Age: 78 Year
  Sex: Female

DRUGS (1)
  1. FOSAMAX [Suspect]
     Indication: OSTEOPOROSIS
     Route: 048

REACTIONS (3)
  - MACROGNATHIA [None]
  - OSTEOMYELITIS CHRONIC [None]
  - OSTEONECROSIS [None]
